FAERS Safety Report 12210108 (Version 7)
Quarter: 2018Q3

REPORT INFORMATION
  Report Type: Report from Study
  Country: NL (occurrence: NL)
  Receive Date: 20160325
  Receipt Date: 20180920
  Transmission Date: 20181010
  Serious: Yes (Hospitalization, Other)
  Sender: FDA-Public Use
  Company Number: PHHY2016NL028943

PATIENT
  Age: 43 Year
  Sex: Female

DRUGS (7)
  1. GILENYA [Suspect]
     Active Substance: FINGOLIMOD HYDROCHLORIDE
     Indication: RELAPSING-REMITTING MULTIPLE SCLEROSIS
     Dosage: 0.5 MG, QD
     Route: 048
     Dates: start: 20160208, end: 20160307
  2. GILENYA [Suspect]
     Active Substance: FINGOLIMOD HYDROCHLORIDE
     Indication: MULTIPLE SCLEROSIS
  3. TYSABRI [Suspect]
     Active Substance: NATALIZUMAB
     Indication: PRODUCT USED FOR UNKNOWN INDICATION
     Dosage: UNK
     Route: 065
  4. FAMPRIDINE [Suspect]
     Active Substance: DALFAMPRIDINE
     Dosage: 5 MG1.5 TABLETS)
     Route: 065
  5. TYSABRI [Suspect]
     Active Substance: NATALIZUMAB
     Dosage: UNK
     Route: 065
     Dates: start: 201611
  6. FAMPRIDINE [Suspect]
     Active Substance: DALFAMPRIDINE
     Indication: MULTIPLE SCLEROSIS
     Dosage: 7.5 MG, UNK
     Route: 065
     Dates: start: 20130402
  7. METHYLPREDNISOLONE. [Concomitant]
     Active Substance: METHYLPREDNISOLONE
     Indication: PRODUCT USED FOR UNKNOWN INDICATION
     Dosage: 1000 MG, UNK
     Route: 065
     Dates: start: 201503

REACTIONS (11)
  - Lymphopenia [Recovered/Resolved]
  - Swelling face [Recovering/Resolving]
  - JC polyomavirus test positive [Unknown]
  - Hypertension [Recovering/Resolving]
  - Malaise [Recovered/Resolved]
  - Depression [Unknown]
  - Hypothermia [Recovered/Resolved]
  - Weight increased [Recovering/Resolving]
  - Hypothermia [Recovered/Resolved]
  - Fluid retention [Unknown]
  - White blood cell count decreased [Unknown]

NARRATIVE: CASE EVENT DATE: 20160212
